FAERS Safety Report 8782858 (Version 3)
Quarter: 2012Q4

REPORT INFORMATION
  Report Type: 
  Country: IT (occurrence: IT)
  Receive Date: 20120913
  Receipt Date: 20121113
  Transmission Date: 20130627
  Serious: Yes (Other)
  Sender: FDA-Public Use
  Company Number: IT-VIIV HEALTHCARE LIMITED-B0829826A

PATIENT
  Age: 44 Year
  Sex: Female

DRUGS (4)
  1. KIVEXA [Suspect]
     Indication: ANTIRETROVIRAL THERAPY
     Dosage: 900MG per day
     Route: 048
     Dates: start: 20120419, end: 20120815
  2. TELZIR [Suspect]
     Indication: ANTIRETROVIRAL THERAPY
     Dosage: 700MG Twice per day
     Route: 048
     Dates: start: 20060407
  3. NORVIR [Suspect]
     Indication: ANTIRETROVIRAL THERAPY
     Dosage: 100MG Per day
     Route: 048
     Dates: start: 20060407
  4. PREFOLIC [Concomitant]
     Route: 048

REACTIONS (9)
  - Nausea [Unknown]
  - Vomiting [Unknown]
  - Disturbance in attention [Unknown]
  - Diarrhoea [Unknown]
  - Fatigue [Unknown]
  - Hyperhidrosis [Unknown]
  - Abdominal pain [Unknown]
  - Insomnia [Unknown]
  - Malaise [Unknown]
